FAERS Safety Report 15268651 (Version 1)
Quarter: 2018Q3

REPORT INFORMATION
  Report Type: Spontaneous
  Country: US (occurrence: US)
  Receive Date: 20180726
  Receipt Date: 20180726
  Transmission Date: 20181010
  Serious: Yes (Life-Threatening, Hospitalization, Other)
  Sender: FDA-Public Use
  Company Number: None

PATIENT
  Age: 80 Year
  Sex: Female
  Weight: 77.11 kg

DRUGS (1)
  1. MELOXICAM 7.5 MG [Suspect]
     Active Substance: MELOXICAM
     Indication: SCIATICA
     Dosage: ?          QUANTITY:1 DF DOSAGE FORM;?
     Route: 048
     Dates: start: 20170531, end: 20170808

REACTIONS (3)
  - Tubulointerstitial nephritis [None]
  - Nausea [None]
  - Renal failure [None]

NARRATIVE: CASE EVENT DATE: 20171005
